FAERS Safety Report 18482366 (Version 1)
Quarter: 2020Q4

REPORT INFORMATION
  Report Type: Spontaneous
  Country: US (occurrence: US)
  Receive Date: 20201109
  Receipt Date: 20201109
  Transmission Date: 20210114
  Serious: No
  Sender: FDA-Public Use
  Company Number: US-FOUNDATIONCONSUMERHC-2020-US-015654

PATIENT
  Age: 37 Year
  Sex: Female
  Weight: 70.31 kg

DRUGS (4)
  1. PLAN B ONE-STEP [Suspect]
     Active Substance: LEVONORGESTREL
     Indication: POST COITAL CONTRACEPTION
     Dosage: 1.5 MG X 2 DOSES
     Route: 048
     Dates: start: 20200727, end: 20200729
  2. VENTOLIN [Concomitant]
     Active Substance: ALBUTEROL SULFATE
  3. MAGNESIUM [Concomitant]
     Active Substance: MAGNESIUM
  4. HAIR VITAMINS [Concomitant]

REACTIONS (4)
  - Menstruation delayed [Not Recovered/Not Resolved]
  - Dysmenorrhoea [Not Recovered/Not Resolved]
  - Incorrect dosage administered [Recovered/Resolved]
  - Intentional product misuse [Recovered/Resolved]

NARRATIVE: CASE EVENT DATE: 20200727
